FAERS Safety Report 19240409 (Version 1)
Quarter: 2021Q2

REPORT INFORMATION
  Report Type: Spontaneous
  Country: US (occurrence: US)
  Receive Date: 20210511
  Receipt Date: 20210511
  Transmission Date: 20210717
  Serious: Yes (Death, Other)
  Sender: FDA-Public Use
  Company Number: US-GLAND PHARMA LIMITED-2021US003663

PATIENT
  Age: 35 Year
  Sex: Male

DRUGS (2)
  1. ABRAXANE [Suspect]
     Active Substance: PACLITAXEL
     Indication: PANCREATIC CARCINOMA RECURRENT
     Dosage: UNK
     Route: 065
  2. GEMCITABINE. [Suspect]
     Active Substance: GEMCITABINE
     Indication: PANCREATIC CARCINOMA RECURRENT
     Dosage: UNK
     Route: 065

REACTIONS (5)
  - Stress cardiomyopathy [Fatal]
  - Acute kidney injury [Fatal]
  - Organ failure [Fatal]
  - Acute respiratory distress syndrome [Fatal]
  - Thrombotic microangiopathy [Fatal]
